FAERS Safety Report 11007396 (Version 2)
Quarter: 2015Q2

REPORT INFORMATION
  Report Type: Spontaneous
  Country: US (occurrence: US)
  Receive Date: 20150409
  Receipt Date: 20150525
  Transmission Date: 20150821
  Serious: No
  Sender: FDA-Public Use
  Company Number: US-JNJFOC-20131113014

PATIENT
  Age: 71 Year
  Sex: Male
  Weight: 77.11 kg

DRUGS (26)
  1. REMICADE [Suspect]
     Active Substance: INFLIXIMAB
     Indication: PSORIASIS
     Route: 042
     Dates: start: 20131120
  2. VITAMIN A AND D [Concomitant]
     Active Substance: LANOLIN\PETROLATUM
     Route: 065
  3. SIMVASTATIN. [Concomitant]
     Active Substance: SIMVASTATIN
     Route: 065
  4. HYDROCORTISONE VALERATE. [Concomitant]
     Active Substance: HYDROCORTISONE VALERATE
     Route: 065
  5. MEGLUMINE GADOPENTETATE [Concomitant]
     Route: 065
  6. ASPIRIN. [Concomitant]
     Active Substance: ASPIRIN
     Route: 065
  7. GLUCOSAMINE [Concomitant]
     Active Substance: GLUCOSAMINE
     Route: 065
  8. VITAMIN C AND E [Concomitant]
     Active Substance: .ALPHA.-TOCOPHEROL\ASCORBIC ACID
     Route: 065
  9. ZYRTEC [Concomitant]
     Active Substance: CETIRIZINE HYDROCHLORIDE
     Indication: PREMEDICATION
     Route: 048
     Dates: start: 20131120
  10. METOPROLOL [Concomitant]
     Active Substance: METOPROLOL
     Route: 065
  11. ASPIRIN. [Concomitant]
     Active Substance: ASPIRIN
     Route: 065
  12. HCTZ [Concomitant]
     Active Substance: HYDROCHLOROTHIAZIDE
     Route: 065
  13. SOLARAZE [Concomitant]
     Active Substance: DICLOFENAC SODIUM
     Route: 065
  14. CLOBETASOL [Concomitant]
     Active Substance: CLOBETASOL
     Route: 065
  15. COQ10 [Concomitant]
     Active Substance: UBIDECARENONE
     Route: 065
  16. REMICADE [Suspect]
     Active Substance: INFLIXIMAB
     Indication: PSORIASIS
     Dosage: INFLIXIMAB RECEIVED FROM 5.5 YEARS
     Route: 042
  17. CHONDROITIN [Concomitant]
     Active Substance: CHONDROITIN
     Route: 065
  18. GLUCOSAMINE CHONDROITIN MSM [Concomitant]
     Route: 065
  19. REMICADE [Suspect]
     Active Substance: INFLIXIMAB
     Indication: PSORIASIS
     Route: 042
     Dates: start: 20131120
  20. REMICADE [Suspect]
     Active Substance: INFLIXIMAB
     Indication: PSORIASIS
     Dosage: INFLIXIMAB RECEIVED FROM 5.5 YEARS
     Route: 042
     Dates: start: 2008
  21. TRIAMTERENE. [Concomitant]
     Active Substance: TRIAMTERENE
     Route: 065
  22. LISINOPRIL. [Concomitant]
     Active Substance: LISINOPRIL
     Route: 065
  23. BETAMETHASONE DIPROPIONATE. [Concomitant]
     Active Substance: BETAMETHASONE DIPROPIONATE
     Route: 065
  24. SAW  PALMETTO [Concomitant]
     Active Substance: SAW PALMETTO
     Route: 065
  25. REMICADE [Suspect]
     Active Substance: INFLIXIMAB
     Indication: PSORIASIS
     Dosage: INFLIXIMAB RECEIVED FROM 5.5 YEARS
     Route: 042
     Dates: start: 2008
  26. REMICADE [Suspect]
     Active Substance: INFLIXIMAB
     Indication: PSORIASIS
     Dosage: INFLIXIMAB RECEIVED FROM 5.5 YEARS
     Route: 042

REACTIONS (6)
  - Psoriasis [Unknown]
  - Flushing [Recovered/Resolved]
  - Hyperhidrosis [Recovered/Resolved]
  - Chills [Recovered/Resolved]
  - Infusion related reaction [Recovered/Resolved]
  - Feeling hot [Recovered/Resolved]

NARRATIVE: CASE EVENT DATE: 20131120
